FAERS Safety Report 21853299 (Version 8)
Quarter: 2024Q1

REPORT INFORMATION
  Report Type: Report from Study
  Country: CA (occurrence: CA)
  Receive Date: 20230112
  Receipt Date: 20240117
  Transmission Date: 20240410
  Serious: Yes (Other)
  Sender: FDA-Public Use
  Company Number: CA-TAKEDA-2023TUS003547

PATIENT
  Age: 37 Year
  Sex: Female
  Weight: 71 kg

DRUGS (8)
  1. VEDOLIZUMAB [Suspect]
     Active Substance: VEDOLIZUMAB
     Indication: Colitis ulcerative
     Dosage: 300 MILLIGRAM
     Route: 042
     Dates: start: 20221213
  2. VEDOLIZUMAB [Suspect]
     Active Substance: VEDOLIZUMAB
     Dosage: 300 MILLIGRAM
     Route: 042
  3. VEDOLIZUMAB [Suspect]
     Active Substance: VEDOLIZUMAB
     Dosage: 300 MILLIGRAM
     Route: 042
  4. VEDOLIZUMAB [Suspect]
     Active Substance: VEDOLIZUMAB
     Dosage: 300 MILLIGRAM
     Route: 042
  5. VEDOLIZUMAB [Suspect]
     Active Substance: VEDOLIZUMAB
     Dosage: 300 MILLIGRAM
     Route: 042
  6. Salofalk [Concomitant]
     Dosage: UNK
     Dates: start: 2015
  7. MESALAMINE [Concomitant]
     Active Substance: MESALAMINE
     Dosage: UNK
     Dates: start: 202102
  8. ENTOCORT [Concomitant]
     Active Substance: BUDESONIDE
     Dosage: UNK
     Dates: start: 2021

REACTIONS (15)
  - Colitis ulcerative [Recovered/Resolved]
  - Haematochezia [Unknown]
  - Migraine [Recovered/Resolved]
  - Feeling cold [Recovered/Resolved]
  - Back pain [Recovered/Resolved]
  - Mucous stools [Unknown]
  - Mental fatigue [Unknown]
  - Dysphonia [Unknown]
  - COVID-19 [Recovered/Resolved]
  - Nasal congestion [Unknown]
  - Chills [Unknown]
  - Fatigue [Unknown]
  - Oropharyngeal pain [Unknown]
  - Cough [Unknown]
  - Influenza [Unknown]

NARRATIVE: CASE EVENT DATE: 20230330
